FAERS Safety Report 5674415-8 (Version None)
Quarter: 2008Q1

REPORT INFORMATION
  Report Type: 
  Country: None (occurrence: None)
  Receive Date: 20080320
  Receipt Date: 20080225
  Transmission Date: 20080703
  Serious: No
  Sender: FDA-Public Use
  Company Number: US-BAYER-200814551NA

PATIENT
  Age: 63 Year
  Sex: Male

DRUGS (12)
  1. LEVITRA [Suspect]
     Indication: ERECTILE DYSFUNCTION
     Dosage: TOTAL DAILY DOSE: 20 MG  UNIT DOSE: 20 MG
     Route: 048
     Dates: start: 20080217, end: 20080217
  2. LEVITRA [Suspect]
     Dosage: TOTAL DAILY DOSE: 10 MG  UNIT DOSE: 20 MG
     Route: 048
     Dates: start: 20080208, end: 20080208
  3. LEVITRA [Suspect]
     Dosage: TOTAL DAILY DOSE: 5 MG  UNIT DOSE: 20 MG
     Route: 048
     Dates: start: 20080203, end: 20080203
  4. LEVITRA [Suspect]
     Dosage: TOTAL DAILY DOSE: 15 MG  UNIT DOSE: 20 MG
     Route: 048
     Dates: start: 20080210, end: 20080210
  5. ATENOLOL [Concomitant]
  6. FUROSEMIDE [Concomitant]
  7. ASPIRIN [Concomitant]
  8. OCUVITE [Concomitant]
  9. SPIRONOLACTONE [Concomitant]
  10. CHROMIUM PICOLINATE [Concomitant]
  11. LISINOPRIL [Concomitant]
  12. INSULIN [Concomitant]

REACTIONS (1)
  - ERECTILE DYSFUNCTION [None]
